FAERS Safety Report 12431826 (Version 1)
Quarter: 2016Q2

REPORT INFORMATION
  Report Type: Spontaneous
  Country: US (occurrence: None)
  Receive Date: 20160602
  Receipt Date: 20160602
  Transmission Date: 20160815
  Serious: Yes (Other)
  Sender: FDA-Public Use
  Company Number: None

PATIENT
  Age: 49 Year
  Sex: Female
  Weight: 61.24 kg

DRUGS (1)
  1. TRILEPTAL [Suspect]
     Active Substance: OXCARBAZEPINE
     Indication: AKATHISIA
     Route: 048
     Dates: start: 20100210, end: 20100610

REACTIONS (2)
  - Mania [None]
  - Panic attack [None]

NARRATIVE: CASE EVENT DATE: 20100210
